FAERS Safety Report 9693886 (Version 1)
Quarter: 2013Q4

REPORT INFORMATION
  Report Type: Spontaneous
  Country: RO (occurrence: None)
  Receive Date: 20131114
  Receipt Date: 20131114
  Transmission Date: 20140711
  Serious: Yes (Hospitalization)
  Sender: FDA-Public Use
  Company Number: 2012P1028763

PATIENT
  Age: 60 Year
  Sex: Male
  Weight: 89 kg

DRUGS (2)
  1. DIGOXIN [Suspect]
     Indication: CARDIAC FAILURE
     Dosage: .125 MG;QD;PO
     Route: 048
     Dates: start: 20111107, end: 20111117
  2. PLACEBO [Suspect]
     Indication: CORONARY ARTERY DISEASE
     Dosage: ;OD;PO
     Route: 048
     Dates: start: 20090617

REACTIONS (2)
  - Cardiac failure [None]
  - Condition aggravated [None]
